FAERS Safety Report 10042515 (Version 3)
Quarter: 2014Q2

REPORT INFORMATION
  Report Type: Spontaneous
  Country: US (occurrence: US)
  Receive Date: 20140327
  Receipt Date: 20140410
  Transmission Date: 20141212
  Serious: Yes (Other)
  Sender: FDA-Public Use
  Company Number: CHPA2014US004289

PATIENT
  Age: 63 Year
  Sex: Female

DRUGS (10)
  1. EXCEDRIN TENSION HEADACHE [Suspect]
     Indication: HEADACHE
     Dosage: 2 DF, QID
     Route: 048
     Dates: start: 1994, end: 2012
  2. EXCEDRIN TENSION HEADACHE [Suspect]
     Indication: ARTHRITIS
  3. EXCEDRIN TENSION HEADACHE [Suspect]
     Indication: OFF LABEL USE
  4. NORVASC [Concomitant]
     Dosage: 20 MG, UNK
  5. ULTRAN [Concomitant]
     Dosage: 50 MG, UNK
  6. GABAPENTIN [Concomitant]
     Dosage: 300 MG, UNK
  7. HYDROXYZINE [Concomitant]
  8. HYDROCHLOORTHIAZIDE [Concomitant]
     Dosage: 40 MG, UNK
  9. POTASSIUM CHLORIDE [Concomitant]
     Dosage: 10 MG, UNK
  10. ZYRTEC [Concomitant]
     Dosage: 10 MG, UNK

REACTIONS (3)
  - Road traffic accident [Unknown]
  - Joint injury [Not Recovered/Not Resolved]
  - Arthritis [Not Recovered/Not Resolved]
